FAERS Safety Report 7930524-1 (Version None)
Quarter: 2011Q4

REPORT INFORMATION
  Report Type: 
  Country: None (occurrence: None)
  Receive Date: 20111117
  Receipt Date: 20111107
  Transmission Date: 20120403
  Serious: Yes (Disabling, Other)
  Sender: FDA-Public Use
  Company Number: CIP11003006

PATIENT
  Age: 72 Year
  Sex: Female
  Weight: 65 kg

DRUGS (1)
  1. ACTONEL [Suspect]
     Dosage: 150 MG, ONCE MONTHLY, ORAL
     Route: 048
     Dates: start: 20090101

REACTIONS (2)
  - CEREBROVASCULAR ACCIDENT [None]
  - APHASIA [None]
